FAERS Safety Report 13370083 (Version 1)
Quarter: 2017Q1

REPORT INFORMATION
  Report Type: Spontaneous
  Country: US (occurrence: US)
  Receive Date: 20170324
  Receipt Date: 20170324
  Transmission Date: 20170429
  Serious: Yes (Other)
  Sender: FDA-Public Use
  Company Number: US-MYLANLABS-2017M1018172

PATIENT

DRUGS (14)
  1. RIFAMPICIN [Interacting]
     Active Substance: RIFAMPIN
     Indication: MENINGITIS STAPHYLOCOCCAL
     Route: 042
  2. SIROLIMUS. [Interacting]
     Active Substance: SIROLIMUS
     Indication: GRAFT VERSUS HOST DISEASE IN SKIN
     Dosage: DOSE WAS INCREASED TO 12MG LOADING DOSE, LATER DOSE WAS FURTHER INCREASED.
     Route: 048
  3. VANCOMYCIN [Concomitant]
     Active Substance: VANCOMYCIN
     Indication: ANTIBIOTIC THERAPY
     Route: 065
  4. VORICONAZOLE. [Suspect]
     Active Substance: VORICONAZOLE
     Indication: ANTIFUNGAL PROPHYLAXIS
     Route: 048
  5. SIROLIMUS. [Interacting]
     Active Substance: SIROLIMUS
     Dosage: DOSE WAS INCREASED TO 16-18MG DAILY, THEN DOSE WAS REDUCED
     Route: 048
  6. SIROLIMUS. [Interacting]
     Active Substance: SIROLIMUS
     Dosage: DOSE REDUCED:4MG DAILY OVER NEXT 8D, DOSE FURTHER REDUCED: 0.4MG DAILY AFTER VORICONAZOLE RE-STARTED
     Route: 048
  7. OFLOXACIN. [Concomitant]
     Active Substance: OFLOXACIN
     Indication: OTITIS EXTERNA
     Route: 050
  8. CEFEPIME [Concomitant]
     Active Substance: CEFEPIME HYDROCHLORIDE
     Indication: ANTIBIOTIC THERAPY
     Route: 065
  9. MICAFUNGIN [Concomitant]
     Active Substance: MICAFUNGIN
     Indication: ANTIFUNGAL PROPHYLAXIS
     Dosage: 150MG DAILY
     Route: 042
  10. SIROLIMUS. [Interacting]
     Active Substance: SIROLIMUS
     Indication: PROPHYLAXIS AGAINST GRAFT VERSUS HOST DISEASE
     Dosage: 0.4MG DAILY. DOSE WAS INCREASED.
     Route: 048
  11. MYCOPHENOLATE [Concomitant]
     Active Substance: MYCOPHENOLIC ACID
     Indication: PROPHYLAXIS AGAINST GRAFT VERSUS HOST DISEASE
     Route: 065
  12. ETANERCEPT [Concomitant]
     Active Substance: ETANERCEPT
     Indication: GRAFT VERSUS HOST DISEASE IN SKIN
     Route: 065
  13. ANTITHYMOCYTE IMMUNOGLOBULIN [Concomitant]
     Active Substance: THYMOCYTE IMMUNE GLOBULIN NOS
     Indication: GRAFT VERSUS HOST DISEASE IN SKIN
     Route: 065
  14. LINEZOLID. [Concomitant]
     Active Substance: LINEZOLID
     Indication: MENINGITIS STAPHYLOCOCCAL
     Route: 042

REACTIONS (2)
  - Drug level decreased [Recovered/Resolved]
  - Drug interaction [Recovered/Resolved]
